FAERS Safety Report 24579546 (Version 2)
Quarter: 2024Q4

REPORT INFORMATION
  Report Type: Spontaneous
  Country: US (occurrence: US)
  Receive Date: 20241105
  Receipt Date: 20241122
  Transmission Date: 20250115
  Serious: No
  Sender: LEO PHARM
  Company Number: US-LEO Pharma-374783

PATIENT
  Age: 69 Year
  Sex: Female

DRUGS (1)
  1. ADBRY [Suspect]
     Active Substance: TRALOKINUMAB-LDRM
     Indication: Eczema
     Dosage: 600 MG OF ADBRY? FOR THE INITIAL DOSE SUBCUTANEOUSLY. PATIENT DISCONTINUED ADBRY?, ONLY RECEIVED THE
     Route: 058

REACTIONS (1)
  - Urticaria [Recovered/Resolved]
